FAERS Safety Report 14327835 (Version 2)
Quarter: 2021Q4

REPORT INFORMATION
  Report Type: Spontaneous
  Country: US (occurrence: US)
  Receive Date: 20171227
  Receipt Date: 20211008
  Transmission Date: 20220304
  Serious: No
  Sender: FDA-Public Use
  Company Number: US-PFIZER INC-2017546740

PATIENT
  Age: 65 Year
  Sex: Male
  Weight: 92.99 kg

DRUGS (1)
  1. SERTRALINE HYDROCHLORIDE [Suspect]
     Active Substance: SERTRALINE HYDROCHLORIDE
     Indication: Depression
     Dosage: 300 MG, DAILY

REACTIONS (2)
  - Drug ineffective [Unknown]
  - Prescribed overdose [Unknown]
